FAERS Safety Report 11569333 (Version 1)
Quarter: 2015Q3

REPORT INFORMATION
  Report Type: Spontaneous
  Country: US (occurrence: None)
  Receive Date: 20150928
  Receipt Date: 20150928
  Transmission Date: 20151125
  Serious: No
  Sender: FDA-Public Use
  Company Number: None

PATIENT
  Age: 74 Year
  Sex: Male
  Weight: 79.38 kg

DRUGS (11)
  1. GLUCOSAMINE [Concomitant]
     Active Substance: GLUCOSAMINE
  2. ASPIRIN. [Concomitant]
     Active Substance: ASPIRIN
  3. FISH OIL [Concomitant]
     Active Substance: FISH OIL
  4. CALCIUM [Concomitant]
     Active Substance: CALCIUM
  5. COQ10 [Concomitant]
     Active Substance: UBIDECARENONE
  6. GAVILYTE G [Suspect]
     Active Substance: POLYETHYLENE GLYCOL 3350\POTASSIUM CHLORIDE\SODIUM BICARBONATE\SODIUM CHLORIDE\SODIUM SULFATE ANHYDROUS
     Indication: COLONOSCOPY
     Dosage: 240 MLS  1/2 PM, 1/2 AM
     Route: 048
     Dates: start: 20150915, end: 20150916
  7. CHONDROITIN [Concomitant]
     Active Substance: CHONDROITIN
  8. VITAMIN C [Concomitant]
     Active Substance: ASCORBIC ACID
  9. RED YEAST RICE [Concomitant]
     Active Substance: DIETARY SUPPLEMENT
  10. COZAAR [Concomitant]
     Active Substance: LOSARTAN POTASSIUM
  11. MULTI VIT. [Concomitant]

REACTIONS (3)
  - Heart rate irregular [None]
  - Anxiety [None]
  - Blood pressure abnormal [None]

NARRATIVE: CASE EVENT DATE: 20150916
